FAERS Safety Report 16757921 (Version 1)
Quarter: 2019Q3

REPORT INFORMATION
  Report Type: Spontaneous
  Country: GB (occurrence: GB)
  Receive Date: 20190830
  Receipt Date: 20190830
  Transmission Date: 20191005
  Serious: Yes (Other)
  Sender: FDA-Public Use
  Company Number: GB-SA-2019SA230732

PATIENT
  Age: 67 Year
  Sex: Male

DRUGS (1)
  1. CABAZITAXEL [Suspect]
     Active Substance: CABAZITAXEL
     Indication: PROSTATE CANCER
     Dosage: 48 MG, UNK
     Route: 042
     Dates: start: 20171214

REACTIONS (12)
  - Neutrophil count increased [Recovered/Resolved]
  - Blood urine present [Unknown]
  - Dry skin [Recovered/Resolved]
  - Pain in extremity [Recovered/Resolved]
  - Deep vein thrombosis [Recovered/Resolved]
  - Peripheral swelling [Recovered/Resolved]
  - Protein urine present [Unknown]
  - Temperature difference of extremities [Recovered/Resolved]
  - Cystitis [Not Recovered/Not Resolved]
  - Rash [Recovered/Resolved]
  - Diarrhoea [Recovered/Resolved]
  - White blood cells urine positive [Unknown]

NARRATIVE: CASE EVENT DATE: 20180215
